FAERS Safety Report 9276044 (Version 1)
Quarter: 2012Q4

REPORT INFORMATION
  Report Type: Spontaneous
  Country: JP (occurrence: None)
  Receive Date: 20121109
  Receipt Date: 20121109
  Transmission Date: 20130627
  Serious: Yes (Other)
  Sender: FDA-Public Use
  Company Number: 2012S1000525

PATIENT
  Age: 66 Year

DRUGS (4)
  1. CUBICIN [Suspect]
     Dosage: U U ;UNK ; IV
     Route: 042
  2. TAKEPRON [Concomitant]
  3. ALL OTHER THERAPEUTIC PRODUCTS [Concomitant]
  4. FAT EMULSIONS [Concomitant]

REACTIONS (3)
  - Ascites [None]
  - Aspartate aminotransferase increased [None]
  - Alanine aminotransferase increased [None]
